FAERS Safety Report 8849195 (Version 1)
Quarter: 2012Q4

REPORT INFORMATION
  Report Type: 
  Country: JP (occurrence: JP)
  Receive Date: 20121019
  Receipt Date: 20121019
  Transmission Date: 20130627
  Serious: Yes (Other)
  Sender: FDA-Public Use
  Company Number: PHHY2012JP092552

PATIENT
  Sex: Female

DRUGS (1)
  1. GLIVEC [Suspect]
     Indication: GASTROINTESTINAL STROMAL TUMOUR
     Dosage: 400 mg, UNK
     Route: 048
     Dates: start: 2004

REACTIONS (7)
  - Nodule [Unknown]
  - Pulmonary mass [Unknown]
  - Second primary malignancy [Unknown]
  - Ocular hyperaemia [Unknown]
  - Muscle spasms [Unknown]
  - Oedema [Recovered/Resolved]
  - Nausea [Unknown]
